FAERS Safety Report 8299698-X (Version None)
Quarter: 2012Q2

REPORT INFORMATION
  Report Type: 
  Country: None (occurrence: None)
  Receive Date: 20120419
  Receipt Date: 20120411
  Transmission Date: 20120825
  Serious: Yes (Hospitalization)
  Sender: FDA-Public Use
  Company Number: CA-ROCHE-1059143

PATIENT
  Age: 20 Month
  Sex: Male

DRUGS (3)
  1. NUTROPIN [Suspect]
     Indication: PRODUCT USED FOR UNKNOWN INDICATION
     Route: 058
  2. SYNTHROID [Concomitant]
     Route: 065
  3. HYDROCORTISONE [Concomitant]
     Route: 065

REACTIONS (2)
  - CRYPTORCHISM [None]
  - ORCHIDOPEXY [None]
